FAERS Safety Report 8116022-3 (Version None)
Quarter: 2012Q1

REPORT INFORMATION
  Report Type: 
  Country: None (occurrence: None)
  Receive Date: 20120201
  Receipt Date: 20120123
  Transmission Date: 20120608
  Serious: Yes (Other)
  Sender: FDA-Public Use
  Company Number: HRA-CDB20120017

PATIENT
  Age: 31 Year
  Sex: Female
  Weight: 66 kg

DRUGS (1)
  1. ELLAONE (ELLAONE) (ULIPRISTAL ACETATE) [Suspect]
     Indication: POST COITAL CONTRACEPTION

REACTIONS (2)
  - PREGNANCY AFTER POST COITAL CONTRACEPTION [None]
  - MATERNAL EXPOSURE DURING PREGNANCY [None]
